FAERS Safety Report 6265955-1 (Version None)
Quarter: 2009Q3

REPORT INFORMATION
  Report Type: 
  Country: None (occurrence: None)
  Receive Date: 20090713
  Receipt Date: 20090703
  Transmission Date: 20100115
  Serious: Yes (Hospitalization)
  Sender: FDA-Public Use
  Company Number: GB-CELGENEUS-167-C5013-09061608

PATIENT
  Sex: Female
  Weight: 49 kg

DRUGS (8)
  1. CC-5013 [Suspect]
     Route: 048
     Dates: start: 20090606, end: 20090622
  2. CC-5013 [Suspect]
     Route: 048
     Dates: start: 20090629
  3. PENICILLIN [Concomitant]
     Indication: INFECTION PROPHYLAXIS
     Route: 048
     Dates: start: 20080301
  4. SINEMET [Concomitant]
     Indication: PARKINSON'S DISEASE
     Route: 048
     Dates: start: 20081101
  5. SINEMET [Concomitant]
     Route: 065
  6. SINEMET [Concomitant]
     Dosage: 1.5 - AM, 1 - AFTERNOON, 1- EVENING
     Route: 065
  7. SINEMET [Concomitant]
     Dosage: 1.5
     Route: 065
  8. ALLOPURINOL [Concomitant]
     Indication: PROPHYLAXIS
     Route: 048
     Dates: start: 20090605

REACTIONS (2)
  - LOWER RESPIRATORY TRACT INFECTION [None]
  - TUMOUR FLARE [None]
